FAERS Safety Report 13557663 (Version 10)
Quarter: 2018Q4

REPORT INFORMATION
  Report Type: Report from Study
  Country: US (occurrence: US)
  Receive Date: 20170518
  Receipt Date: 20181109
  Transmission Date: 20190204
  Serious: Yes (Hospitalization, Other)
  Sender: FDA-Public Use
  Company Number: US-JNJFOC-20170502960

PATIENT
  Age: 73 Year
  Sex: Male

DRUGS (20)
  1. FOLIC ACID. [Concomitant]
     Active Substance: FOLIC ACID
  2. HYDROCHLOROTHIAZIDE. [Concomitant]
     Active Substance: HYDROCHLOROTHIAZIDE
  3. IMBRUVICA [Suspect]
     Active Substance: IBRUTINIB
     Indication: CHRONIC LYMPHOCYTIC LEUKAEMIA
     Route: 048
     Dates: start: 20170119, end: 20180525
  4. AMOXICILLIN. [Concomitant]
     Active Substance: AMOXICILLIN
  5. TUMS [Concomitant]
     Active Substance: CALCIUM CARBONATE
  6. VITAMIN D [Concomitant]
     Active Substance: CHOLECALCIFEROL
  7. IMBRUVICA [Suspect]
     Active Substance: IBRUTINIB
     Indication: CHRONIC LYMPHOCYTIC LEUKAEMIA
     Route: 048
     Dates: start: 20170120, end: 20170507
  8. CLONIDINE. [Concomitant]
     Active Substance: CLONIDINE
  9. VITAMIN D3 [Concomitant]
     Active Substance: CHOLECALCIFEROL
  10. FLUTICASONE. [Concomitant]
     Active Substance: FLUTICASONE
  11. LOSARTAN. [Concomitant]
     Active Substance: LOSARTAN
  12. FISH OIL W/TOCOPHEROL [Concomitant]
  13. NORVASC [Concomitant]
     Active Substance: AMLODIPINE BESYLATE
  14. CEFDINIR. [Concomitant]
     Active Substance: CEFDINIR
  15. ASPIRIN. [Concomitant]
     Active Substance: ASPIRIN
  16. NIACIN. [Concomitant]
     Active Substance: NIACIN
  17. IMBRUVICA [Suspect]
     Active Substance: IBRUTINIB
     Indication: CHRONIC LYMPHOCYTIC LEUKAEMIA
     Route: 048
     Dates: start: 20170509
  18. ALEVE [Concomitant]
     Active Substance: NAPROXEN SODIUM
  19. POTASSIUM CHLORIDE. [Concomitant]
     Active Substance: POTASSIUM CHLORIDE
  20. ALLOPURINOL. [Concomitant]
     Active Substance: ALLOPURINOL

REACTIONS (7)
  - Pleural effusion [Recovering/Resolving]
  - Fatigue [Recovering/Resolving]
  - Aortic dissection [Recovered/Resolved]
  - Aortic aneurysm [Not Recovered/Not Resolved]
  - White blood cell count decreased [Unknown]
  - Ischaemic nephropathy [Unknown]
  - Myocardial infarction [Unknown]

NARRATIVE: CASE EVENT DATE: 201701
